FAERS Safety Report 7077283-5 (Version None)
Quarter: 2010Q4

REPORT INFORMATION
  Report Type: 
  Country: None (occurrence: None)
  Receive Date: 20101029
  Receipt Date: 20101029
  Transmission Date: 20110411
  Serious: No
  Sender: FDA-Public Use
  Company Number: None

PATIENT
  Sex: Male
  Weight: 72.25 kg

DRUGS (8)
  1. BEVACIZUMAB (RHUMAB VEGF) [Suspect]
     Dosage: 462 MG
     Dates: end: 20101020
  2. LEUCOVORIN CALCIUM [Suspect]
     Dosage: 860 MG
     Dates: end: 20101020
  3. ELOXATIN [Suspect]
     Dosage: 183 MG
     Dates: end: 20101020
  4. FLUOROURACIL [Suspect]
     Dosage: 860 MG
     Dates: end: 20101020
  5. ASPIRIN [Concomitant]
  6. LEVOTHYROXINE [Concomitant]
  7. MULTI-VITAMIN [Concomitant]
  8. PERCOCET [Concomitant]

REACTIONS (1)
  - PULMONARY EMBOLISM [None]
